FAERS Safety Report 12527642 (Version 5)
Quarter: 2016Q4

REPORT INFORMATION
  Report Type: Report from Study
  Country: DE (occurrence: DE)
  Receive Date: 20160705
  Receipt Date: 20161221
  Transmission Date: 20170207
  Serious: Yes (Other)
  Sender: FDA-Public Use
  Company Number: DE-ROCHE-1784255

PATIENT
  Age: 84 Year
  Sex: Male

DRUGS (7)
  1. RANIBIZUMAB [Suspect]
     Active Substance: RANIBIZUMAB
     Dosage: 0.5 MG, UNK (RIGHT EYE)
     Route: 050
     Dates: start: 20160406, end: 20160406
  2. AVASTIN [Concomitant]
     Active Substance: BEVACIZUMAB
     Indication: NEOVASCULAR AGE-RELATED MACULAR DEGENERATION
     Dosage: LEFT EYE
     Route: 031
     Dates: start: 20160224
  3. RANIBIZUMAB [Suspect]
     Active Substance: RANIBIZUMAB
     Indication: NEOVASCULAR AGE-RELATED MACULAR DEGENERATION
     Dosage: (RIGHT EYE)
     Route: 050
     Dates: start: 20160203
  4. RANIBIZUMAB [Suspect]
     Active Substance: RANIBIZUMAB
     Dosage: 0.5 MG, UNK (RIGHT EYE)
     Route: 050
     Dates: start: 20160523
  5. RANIBIZUMAB [Suspect]
     Active Substance: RANIBIZUMAB
     Dosage: 0.5 MG, UNK (RIGHT EYE)
     Route: 050
     Dates: start: 20160309, end: 20160309
  6. RANIBIZUMAB [Suspect]
     Active Substance: RANIBIZUMAB
     Dosage: 0.5 MG, UNK (RIGHT EYE)
     Route: 050
     Dates: start: 20160608, end: 20160608
  7. AVASTIN [Concomitant]
     Active Substance: BEVACIZUMAB
     Dosage: LEFT EYE
     Route: 031
     Dates: start: 20160323

REACTIONS (3)
  - Retinal degeneration [Recovered/Resolved]
  - Glaucoma [Not Recovered/Not Resolved]
  - Intraocular pressure increased [Recovered/Resolved]

NARRATIVE: CASE EVENT DATE: 20160309
